FAERS Safety Report 10021848 (Version 2)
Quarter: 2014Q2

REPORT INFORMATION
  Report Type: Spontaneous
  Country: US (occurrence: US)
  Receive Date: 20140319
  Receipt Date: 20140428
  Transmission Date: 20141212
  Serious: No
  Sender: FDA-Public Use
  Company Number: US-009507513-1403USA007706

PATIENT
  Age: 18 Year
  Sex: Female
  Weight: 57.14 kg

DRUGS (1)
  1. NEXPLANON [Suspect]
     Indication: CONTRACEPTION
     Dosage: 68 MG, UNK
     Route: 059
     Dates: start: 20130909, end: 20140310

REACTIONS (2)
  - Haemorrhage [Unknown]
  - Device breakage [Unknown]
